FAERS Safety Report 4313827-1 (Version None)
Quarter: 2004Q1

REPORT INFORMATION
  Report Type: 
  Country: None (occurrence: None)
  Receive Date: 20040308
  Receipt Date: 20040129
  Transmission Date: 20041129
  Serious: Yes (Life-Threatening, Hospitalization)
  Sender: FDA-Public Use
  Company Number: WAES 0401CAN00121

PATIENT
  Age: 81 Year
  Sex: Female
  Weight: 68 kg

DRUGS (17)
  1. ACETAMINOPHEN [Concomitant]
     Indication: PAIN
     Dates: start: 20031001
  2. ACETAMINOPHEN AND OXYCODONE HYDROCHLORIDE [Concomitant]
     Indication: PAIN
  3. ALBUTEROL SULFATE AND IPRATROPIUM BROMIDE [Concomitant]
     Indication: ASTHMA
     Dates: start: 20030101
  4. FOSAMAX [Suspect]
     Indication: OSTEOPOROSIS
     Route: 048
     Dates: start: 20031023
  5. CALCIUM CARBONATE [Concomitant]
     Indication: OSTEOPOROSIS
     Dates: start: 20031023
  6. DILTIAZEM HYDROCHLORIDE [Concomitant]
     Indication: ANGINA PECTORIS
     Dates: start: 20030601, end: 20031201
  7. HYDROCHLOROTHIAZIDE [Concomitant]
     Indication: FLUID RETENTION
     Dates: start: 19980101, end: 20031201
  8. LORAZEPAM [Concomitant]
     Indication: ANXIETY
     Dates: start: 19980101
  9. NITROGLYCERIN [Concomitant]
     Indication: ANGINA PECTORIS
     Dates: start: 20030801, end: 20031201
  10. POTASSIUM (UNSPECIFIED) [Concomitant]
     Indication: HYPOKALAEMIA
     Dates: start: 20020101, end: 20031201
  11. RAMIPRIL [Concomitant]
     Indication: MYOCARDIAL INFARCTION
     Dates: start: 20020101
  12. RAMIPRIL [Concomitant]
     Indication: HYPERTENSION
     Dates: start: 20020101
  13. TRIMIPRAMINE [Concomitant]
     Indication: SLEEP DISORDER
     Dates: start: 19980101
  14. VENLAFAXINE HYDROCHLORIDE [Concomitant]
     Indication: DEPRESSION
     Dates: start: 20010101, end: 20031201
  15. VITAMIN D (UNSPECIFIED) [Concomitant]
     Indication: OSTEOPOROSIS
     Dates: start: 20031023
  16. VITAMINS (UNSPECIFIED) [Concomitant]
     Indication: OSTEOPOROSIS
     Dates: start: 20031023
  17. ZOPICLONE [Concomitant]
     Dates: start: 20000101

REACTIONS (5)
  - ACUTE MYOCARDIAL INFARCTION [None]
  - BLOOD GLUCOSE INCREASED [None]
  - MITRAL VALVE INCOMPETENCE [None]
  - PNEUMONIA HAEMOPHILUS [None]
  - WHITE BLOOD CELL COUNT INCREASED [None]
